FAERS Safety Report 16363906 (Version 1)
Quarter: 2019Q2

REPORT INFORMATION
  Report Type: Spontaneous
  Country: US (occurrence: US)
  Receive Date: 20190528
  Receipt Date: 20190528
  Transmission Date: 20190711
  Serious: Yes (Other)
  Sender: FDA-Public Use
  Company Number: US-ELI_LILLY_AND_COMPANY-US201905010688

PATIENT
  Age: 58 Year
  Sex: Female
  Weight: 108.9 kg

DRUGS (14)
  1. BASAGLAR [Concomitant]
     Active Substance: INSULIN GLARGINE
  2. NOVOLOG [Concomitant]
     Active Substance: INSULIN ASPART
  3. CALCIUM+D [Concomitant]
     Active Substance: CALCIUM\VITAMIN D
  4. FISH OIL [Concomitant]
     Active Substance: FISH OIL
  5. GABAPENTIN. [Concomitant]
     Active Substance: GABAPENTIN
  6. GLYBURIDE/METFORMIN [Concomitant]
     Active Substance: GLYBURIDE\METFORMIN
  7. VITAMIN B12 [Concomitant]
     Active Substance: CYANOCOBALAMIN
  8. VERZENIO [Suspect]
     Active Substance: ABEMACICLIB
     Indication: BREAST CANCER METASTATIC
     Dosage: 150 MG, BID
     Route: 048
     Dates: start: 20181017
  9. AMLODIPINE [Concomitant]
     Active Substance: AMLODIPINE BESYLATE
  10. ASPIRIN [ACETYLSALICYLIC ACID] [Concomitant]
     Active Substance: ASPIRIN
  11. HYDRALAZINE [Concomitant]
     Active Substance: HYDRALAZINE HYDROCHLORIDE
  12. QUINAPRIL. [Concomitant]
     Active Substance: QUINAPRIL
  13. PRAVASTATIN. [Concomitant]
     Active Substance: PRAVASTATIN
  14. EXEMESTANE. [Concomitant]
     Active Substance: EXEMESTANE
     Dosage: 25 MG, UNKNOWN
     Route: 065

REACTIONS (2)
  - Dyspnoea exertional [Unknown]
  - Chest pain [Unknown]
